FAERS Safety Report 7593919-4 (Version None)
Quarter: 2011Q3

REPORT INFORMATION
  Report Type: 
  Country: None (occurrence: None)
  Receive Date: 20110706
  Receipt Date: 20110624
  Transmission Date: 20111222
  Serious: Yes (Hospitalization)
  Sender: FDA-Public Use
  Company Number: KR-UCBSA-031426

PATIENT
  Sex: Female
  Weight: 56.6 kg

DRUGS (9)
  1. CEFACLOR [Concomitant]
     Indication: INFECTION PROPHYLAXIS
     Route: 048
     Dates: start: 20110219, end: 20110225
  2. FOLIC ACID [Concomitant]
     Indication: DRUG TOXICITY PROPHYLAXIS
     Route: 048
     Dates: start: 20080225
  3. METHOTREXATE [Concomitant]
     Indication: RHEUMATOID ARTHRITIS
     Route: 048
     Dates: start: 20100323, end: 20110310
  4. CERTOLIZUMAB PEGOL [Suspect]
     Indication: RHEUMATOID ARTHRITIS
     Route: 058
     Dates: start: 20100909, end: 20110221
  5. METHOTREXATE [Concomitant]
     Route: 048
     Dates: start: 20110311
  6. CELECOXIB [Concomitant]
     Indication: RHEUMATOID ARTHRITIS
     Route: 048
     Dates: start: 20100323
  7. TRAMADOL HCL [Concomitant]
     Indication: PAIN PROPHYLAXIS
     Route: 048
     Dates: start: 20110219, end: 20110225
  8. FAMOTIDINE [Concomitant]
     Indication: GASTRITIS PROPHYLAXIS
     Route: 048
     Dates: start: 20110219, end: 20110225
  9. HYDROXYCHLOROQUINE SULFATE [Concomitant]
     Indication: RHEUMATOID ARTHRITIS
     Route: 048
     Dates: start: 20110310

REACTIONS (1)
  - ARTERIOVENOUS FISTULA SITE HAEMORRHAGE [None]
